FAERS Safety Report 4380307-7 (Version None)
Quarter: 2004Q2

REPORT INFORMATION
  Report Type: 
  Country: None (occurrence: None)
  Receive Date: 20040614
  Receipt Date: 20040601
  Transmission Date: 20050107
  Serious: Yes (Hospitalization, Other)
  Sender: FDA-Public Use
  Company Number: 2004025926

PATIENT

DRUGS (2)
  1. ZITHROMAX [Suspect]
     Indication: ILL-DEFINED DISORDER
  2. PARACETAMOL (PARACETAMOL) [Suspect]
     Indication: PYREXIA

REACTIONS (4)
  - CHOLECYSTECTOMY [None]
  - CHOLESTASIS [None]
  - DRUG INTERACTION [None]
  - PYREXIA [None]
